FAERS Safety Report 6290772-6 (Version None)
Quarter: 2009Q3

REPORT INFORMATION
  Report Type: 
  Country: None (occurrence: None)
  Receive Date: 20090730
  Receipt Date: 20090722
  Transmission Date: 20100115
  Serious: Yes (Other)
  Sender: FDA-Public Use
  Company Number: PHEH2009US08016

PATIENT
  Sex: Male

DRUGS (2)
  1. SANDOSTATIN [Suspect]
  2. STALEVO 100 [Concomitant]

REACTIONS (3)
  - ABDOMINAL PAIN [None]
  - DRUG INTOLERANCE [None]
  - MALIGNANT NEOPLASM PROGRESSION [None]
